FAERS Safety Report 5249698-9 (Version None)
Quarter: 2007Q1

REPORT INFORMATION
  Report Type: 
  Country: None (occurrence: None)
  Receive Date: 20070228
  Receipt Date: 20060824
  Transmission Date: 20070707
  Serious: No
  Sender: FDA-Public Use
  Company Number: US-GLAXOSMITHKLINE-A0618025A

PATIENT

DRUGS (1)
  1. IMITREX [Suspect]
     Indication: MIGRAINE
     Route: 065

REACTIONS (2)
  - EYE PAIN [None]
  - VISION BLURRED [None]
